FAERS Safety Report 24703936 (Version 3)
Quarter: 2025Q1

REPORT INFORMATION
  Report Type: Report from Study
  Country: US (occurrence: US)
  Receive Date: 20241206
  Receipt Date: 20250115
  Transmission Date: 20250409
  Serious: Yes (Hospitalization, Other)
  Sender: ABBVIE
  Company Number: US-ABBVIE-6029685

PATIENT
  Age: 74 Year
  Sex: Male

DRUGS (1)
  1. CREON [Suspect]
     Active Substance: PANCRELIPASE AMYLASE\PANCRELIPASE LIPASE\PANCRELIPASE PROTEASE
     Indication: Pancreatic carcinoma
     Route: 048
     Dates: start: 20241115

REACTIONS (3)
  - Abscess [Recovering/Resolving]
  - Pancreaticoduodenectomy [Unknown]
  - Post procedural infection [Unknown]

NARRATIVE: CASE EVENT DATE: 20241115
